FAERS Safety Report 5035367-7 (Version None)
Quarter: 2006Q2

REPORT INFORMATION
  Report Type: 
  Country: None (occurrence: None)
  Receive Date: 20060524
  Receipt Date: 20050401
  Transmission Date: 20061013
  Serious: Yes (Other)
  Sender: FDA-Public Use
  Company Number: US-JNJFOC-20050400773

PATIENT
  Age: 23 Year
  Sex: Female

DRUGS (7)
  1. SPORANOX [Suspect]
     Indication: ANTIFUNGAL PROPHYLAXIS
     Dosage: SEE IMAGE
     Route: 042
     Dates: start: 20041218, end: 20041219
  2. SPORANOX [Suspect]
     Indication: ANTIFUNGAL PROPHYLAXIS
     Dosage: SEE IMAGE
     Route: 042
     Dates: start: 20041220, end: 20041222
  3. SPORANOX [Suspect]
     Indication: ANTIFUNGAL PROPHYLAXIS
     Dosage: SEE IMAGE
     Route: 042
     Dates: start: 20041227
  4. SPORANOX [Suspect]
     Indication: ANTIFUNGAL PROPHYLAXIS
     Dosage: 200 MG, 2 IN 1 DAY, ORAL
     Route: 048
  5. CYTOXAN [Suspect]
     Indication: CHEMOTHERAPY
  6. CYTARABINE [Suspect]
     Indication: CHEMOTHERAPY
  7. METHOTREXATE [Concomitant]

REACTIONS (1)
  - LIVER FUNCTION TEST ABNORMAL [None]
